FAERS Safety Report 13941406 (Version 1)
Quarter: 2017Q3

REPORT INFORMATION
  Report Type: Spontaneous
  Country: US (occurrence: US)
  Receive Date: 20170906
  Receipt Date: 20170906
  Transmission Date: 20171127
  Serious: Yes (Other)
  Sender: FDA-Public Use
  Company Number: US-BAYER-2017-164735

PATIENT
  Age: 67 Year
  Sex: Male
  Weight: 104 kg

DRUGS (6)
  1. TERAZOSIN [Concomitant]
     Active Substance: TERAZOSIN\TERAZOSIN HYDROCHLORIDE
     Dosage: UNK
     Dates: start: 20170822
  2. LOSARTAN. [Concomitant]
     Active Substance: LOSARTAN
     Dosage: UNK
     Dates: start: 20170822
  3. OMEPRAZOLE. [Concomitant]
     Active Substance: OMEPRAZOLE
     Dosage: UNK
     Dates: start: 20170822
  4. ALEVE [Suspect]
     Active Substance: NAPROXEN SODIUM
     Indication: PAIN
     Dosage: 1 DF, UNK
     Route: 048
     Dates: start: 20170822, end: 20170822
  5. MULTIVITAMIN [Concomitant]
     Active Substance: VITAMINS
     Dosage: UNK
     Dates: start: 20170822
  6. TUMERIC [Concomitant]
     Active Substance: HERBALS\TURMERIC
     Dosage: UNK
     Dates: start: 20170822

REACTIONS (6)
  - Fatigue [Recovered/Resolved]
  - Gastrooesophageal reflux disease [Recovered/Resolved]
  - Gastrointestinal disorder [Recovered/Resolved]
  - Dyspepsia [Recovered/Resolved]
  - Hypotension [Recovered/Resolved]
  - Hypersomnia [Recovered/Resolved]

NARRATIVE: CASE EVENT DATE: 20170822
